FAERS Safety Report 14525531 (Version 1)
Quarter: 2018Q1

REPORT INFORMATION
  Report Type: Report from Study
  Country: None (occurrence: US)
  Receive Date: 20180213
  Receipt Date: 20180213
  Transmission Date: 20180509
  Serious: Yes (Death, Other)
  Sender: FDA-Public Use
  Company Number: US-AUROBINDO-AUR-APL-2018-005940

PATIENT
  Age: 5 Year
  Sex: Male

DRUGS (1)
  1. METHYLPREDNISOLONE 500MG/VIAL [Suspect]
     Active Substance: METHYLPREDNISOLONE
     Indication: VENOOCCLUSIVE LIVER DISEASE

REACTIONS (5)
  - Multiple organ dysfunction syndrome [Fatal]
  - Hyperglycaemia [None]
  - Histiocytosis haematophagic [Unknown]
  - Renal impairment [Unknown]
  - Lung disorder [Unknown]
